FAERS Safety Report 6782850-X (Version None)
Quarter: 2010Q2

REPORT INFORMATION
  Report Type: 
  Country: None (occurrence: None)
  Receive Date: 20100617
  Receipt Date: 20100609
  Transmission Date: 20101027
  Serious: Yes (Life-Threatening)
  Sender: FDA-Public Use
  Company Number: DSA_43263_2010

PATIENT
  Age: 81 Year
  Sex: Male
  Weight: 73 kg

DRUGS (4)
  1. CARDIZEM [Suspect]
     Indication: ATRIAL FLUTTER
     Dosage: DF
     Dates: start: 20100501
  2. MULTAQ [Suspect]
     Indication: ATRIAL FLUTTER
     Dosage: 400 1X ORAL
     Route: 048
     Dates: start: 20100509, end: 20100509
  3. BYSTOLIC [Suspect]
     Indication: ATRIAL FLUTTER
     Dosage: 2.5 MG QD
     Dates: start: 20100509, end: 20100510
  4. BYSTOLIC [Suspect]
     Indication: HEART RATE ABNORMAL
     Dosage: 2.5 MG QD
     Dates: start: 20100509, end: 20100510

REACTIONS (5)
  - CARDIAC ARREST [None]
  - CONVULSION [None]
  - CORONARY ARTERY STENOSIS [None]
  - HAEMOPTYSIS [None]
  - RESPIRATORY ARREST [None]
